FAERS Safety Report 4288604-0 (Version None)
Quarter: 2004Q1

REPORT INFORMATION
  Report Type: 
  Country: None (occurrence: None)
  Receive Date: 20040209
  Receipt Date: 20031013
  Transmission Date: 20041129
  Serious: Yes (Hospitalization)
  Sender: FDA-Public Use
  Company Number: BE-GLAXOSMITHKLINE-B0312102A

PATIENT
  Age: 26 Year
  Sex: Male

DRUGS (2)
  1. ZYBAN [Suspect]
     Indication: SMOKING CESSATION THERAPY
     Route: 048
     Dates: start: 20030827, end: 20030917
  2. METHYLPREDNISOLONE [Concomitant]
     Dosage: 1TAB SINGLE DOSE
     Dates: start: 20030917, end: 20030917

REACTIONS (12)
  - ARTHRALGIA [None]
  - BODY TEMPERATURE INCREASED [None]
  - DRUG HYPERSENSITIVITY [None]
  - EYELID OEDEMA [None]
  - FACE OEDEMA [None]
  - HYPERSENSITIVITY [None]
  - INFLAMMATION [None]
  - MYALGIA [None]
  - OEDEMA PERIPHERAL [None]
  - RASH MACULO-PAPULAR [None]
  - RASH PRURITIC [None]
  - URTICARIA [None]
